FAERS Safety Report 8049573-0 (Version None)
Quarter: 2012Q1

REPORT INFORMATION
  Report Type: 
  Country: None (occurrence: None)
  Receive Date: 20120117
  Receipt Date: 20120112
  Transmission Date: 20120608
  Serious: Yes (Hospitalization)
  Sender: FDA-Public Use
  Company Number: FR-ROCHE-1030106

PATIENT
  Age: 81 Year
  Sex: Female

DRUGS (4)
  1. AMLODIPINE BESYLATE [Concomitant]
     Dosage: 5 1/DAY
  2. ARICEPT [Concomitant]
     Dosage: 1/DAY
  3. ROCEPHIN [Suspect]
     Indication: PYELONEPHRITIS
     Dates: start: 20111204, end: 20111211
  4. CLAMOXYL (FRANCE) [Suspect]
     Indication: PYELONEPHRITIS
     Route: 048
     Dates: start: 20111211, end: 20111212

REACTIONS (1)
  - DERMATITIS EXFOLIATIVE [None]
